FAERS Safety Report 16526801 (Version 2)
Quarter: 2019Q3

REPORT INFORMATION
  Report Type: Spontaneous
  Country: CA (occurrence: CA)
  Receive Date: 20190703
  Receipt Date: 20190708
  Transmission Date: 20191004
  Serious: Yes (Death, Other)
  Sender: FDA-Public Use
  Company Number: CA-UNITED THERAPEUTICS-UNT-2019-011267

PATIENT

DRUGS (4)
  1. UNITUXIN [Suspect]
     Active Substance: DINUTUXIMAB
     Indication: NEUROBLASTOMA
     Dosage: 5 CYCLES
     Route: 041
  2. ISOTRETINOIN. [Concomitant]
     Active Substance: ISOTRETINOIN
     Indication: NEUROBLASTOMA
     Dosage: 6 CYCLES
     Route: 065
  3. GM-CSF [Concomitant]
     Active Substance: GRANULOCYTE-MACROPHAGE COLONY-STIMULATING FACTOR
     Indication: NEUROBLASTOMA
     Route: 065
  4. INTERLEUKIN-2 [Concomitant]
     Active Substance: ALDESLEUKIN
     Indication: NEUROBLASTOMA
     Route: 065

REACTIONS (3)
  - Treatment failure [Unknown]
  - Disease progression [Fatal]
  - Neuroblastoma [Fatal]
